FAERS Safety Report 4600786-7 (Version None)
Quarter: 2005Q1

REPORT INFORMATION
  Report Type: 
  Country: None (occurrence: None)
  Receive Date: 20050304
  Receipt Date: 20050223
  Transmission Date: 20050727
  Serious: Yes (Hospitalization)
  Sender: FDA-Public Use
  Company Number: 05-02-0275

PATIENT
  Age: 46 Year
  Sex: Male

DRUGS (1)
  1. CLOZAPINE [Suspect]
     Indication: SCHIZOPHRENIA
     Dosage: 100-525MG QD ORAL
     Route: 048
     Dates: start: 20010501

REACTIONS (3)
  - DEHYDRATION [None]
  - FAILURE TO THRIVE [None]
  - ORAL INTAKE REDUCED [None]
